FAERS Safety Report 5765261-5 (Version None)
Quarter: 2008Q2

REPORT INFORMATION
  Report Type: 
  Country: None (occurrence: None)
  Receive Date: 20080609
  Receipt Date: 20080609
  Transmission Date: 20081010
  Serious: No
  Sender: FDA-Public Use
  Company Number: None

PATIENT
  Age: 64 Year
  Sex: Female
  Weight: 52.1637 kg

DRUGS (1)
  1. FLUTICASONE PROPIONATE [Suspect]
     Indication: EAR DISCOMFORT
     Dosage: ONE PUFF EACH NOSTRIL DAILY
     Dates: start: 20070921, end: 20070927

REACTIONS (4)
  - DIZZINESS [None]
  - EAR INJURY [None]
  - PHARMACEUTICAL PRODUCT COMPLAINT [None]
  - TINNITUS [None]
